FAERS Safety Report 6328952-3 (Version None)
Quarter: 2009Q3

REPORT INFORMATION
  Report Type: 
  Country: None (occurrence: None)
  Receive Date: 20090826
  Receipt Date: 20090820
  Transmission Date: 20100115
  Serious: Yes (Other)
  Sender: FDA-Public Use
  Company Number: US-BAYER-200930579NA

PATIENT
  Sex: Female

DRUGS (2)
  1. YAZ [Suspect]
     Indication: CONTRACEPTION
     Dates: start: 20080601
  2. YASMIN [Suspect]
     Indication: CONTRACEPTION
     Dates: start: 20080601

REACTIONS (2)
  - PLEURISY [None]
  - PULMONARY EMBOLISM [None]
